FAERS Safety Report 25426682 (Version 2)
Quarter: 2025Q2

REPORT INFORMATION
  Report Type: Spontaneous
  Country: AT (occurrence: AT)
  Receive Date: 20250612
  Receipt Date: 20250617
  Transmission Date: 20250716
  Serious: Yes (Other)
  Sender: BEIGENE
  Company Number: AT-BEIGENE-BGN-2025-009177

PATIENT
  Age: 67 Year

DRUGS (7)
  1. TEVIMBRA [Suspect]
     Active Substance: TISLELIZUMAB-JSGR
     Indication: Nasopharyngeal cancer metastatic
  2. RAMIPRIL [Concomitant]
     Active Substance: RAMIPRIL
     Indication: Hypertension
     Dosage: 5 MILLIGRAM, QD
  3. GEMCITABINE [Concomitant]
     Active Substance: GEMCITABINE
     Indication: Nasopharyngeal cancer metastatic
  4. GEMCITABINE [Concomitant]
     Active Substance: GEMCITABINE
  5. CISPLATIN [Concomitant]
     Active Substance: CISPLATIN
     Indication: Nasopharyngeal cancer metastatic
  6. CISPLATIN [Concomitant]
     Active Substance: CISPLATIN
  7. DENOSUMAB [Concomitant]
     Active Substance: DENOSUMAB
     Dosage: 120 MILLIGRAM, Q4WK

REACTIONS (1)
  - Disease progression [Unknown]
